FAERS Safety Report 20898323 (Version 1)
Quarter: 2022Q2

REPORT INFORMATION
  Report Type: Spontaneous
  Country: CN (occurrence: CN)
  Receive Date: 20220531
  Receipt Date: 20220531
  Transmission Date: 20220721
  Serious: Yes (Life-Threatening)
  Sender: FDA-Public Use
  Company Number: CN-BAYER-2022A074860

PATIENT
  Age: 67 Year
  Sex: Male
  Weight: 57 kg

DRUGS (2)
  1. XARELTO [Suspect]
     Active Substance: RIVAROXABAN
     Indication: Atrial fibrillation
     Dosage: 1 DF, QD
     Route: 048
     Dates: start: 20200713, end: 20220518
  2. XARELTO [Suspect]
     Active Substance: RIVAROXABAN
     Indication: Cardiac valve disease

REACTIONS (4)
  - Coagulation time prolonged [Recovering/Resolving]
  - International normalised ratio increased [Recovered/Resolved]
  - Prescribed underdose [Unknown]
  - Underdose [Unknown]

NARRATIVE: CASE EVENT DATE: 20200713
